FAERS Safety Report 4389101-4 (Version None)
Quarter: 2004Q2

REPORT INFORMATION
  Report Type: 
  Country: None (occurrence: None)
  Receive Date: 20040624
  Receipt Date: 20040617
  Transmission Date: 20050107
  Serious: Yes (Other)
  Sender: FDA-Public Use
  Company Number: C2004-200-382

PATIENT
  Age: 50 Year
  Sex: Male

DRUGS (1)
  1. CEFAZOLIN [Suspect]

REACTIONS (1)
  - BLOOD GLUCOSE DECREASED [None]
